FAERS Safety Report 7273343 (Version 3)
Quarter: 2013Q1

REPORT INFORMATION
  Report Type: Spontaneous
  Country: US (occurrence: US)
  Receive Date: 20100208
  Receipt Date: 20130221
  Transmission Date: 20140127
  Serious: Yes (Other)
  Sender: FDA-Public Use
  Company Number: US-RB-002689-08

PATIENT
  Sex: Female
  Weight: 65 kg

DRUGS (5)
  1. SUBOXONE [Suspect]
     Indication: DRUG DEPENDENCE
     Route: 060
     Dates: start: 20080417, end: 20080724
  2. SUBUTEX [Suspect]
     Indication: DRUG DEPENDENCE
     Route: 060
     Dates: start: 20080725
  3. LAMICTAL [Suspect]
     Indication: BIPOLAR DISORDER
     Route: 048
  4. XANAX [Suspect]
     Indication: ANXIETY
     Route: 048
  5. CELEXA [Suspect]
     Indication: DEPRESSION
     Route: 048

REACTIONS (2)
  - Exposure during pregnancy [Recovered/Resolved]
  - Abortion spontaneous [Recovered/Resolved]
